FAERS Safety Report 7459228-9 (Version None)
Quarter: 2011Q2

REPORT INFORMATION
  Report Type: 
  Country: None (occurrence: None)
  Receive Date: 20110505
  Receipt Date: 20110414
  Transmission Date: 20111010
  Serious: Yes (Hospitalization)
  Sender: FDA-Public Use
  Company Number: FR-JNJFOC-20110404897

PATIENT
  Sex: Female

DRUGS (8)
  1. BISOPROLOL FUMARATE [Suspect]
     Indication: HYPERTENSION
     Route: 065
  2. METFORMIN [Suspect]
     Indication: DIABETES MELLITUS
     Route: 048
  3. AERIUS [Suspect]
     Indication: INSOMNIA
     Route: 048
  4. ATARAX [Concomitant]
  5. ARAVA [Suspect]
     Indication: RHEUMATOID ARTHRITIS
     Route: 048
  6. LORMETAZEPAM [Suspect]
     Indication: INSOMNIA
     Route: 048
  7. SPIRONOLACTONE [Suspect]
     Indication: HYPERTENSION
     Route: 048
  8. ACETAMINOPHEN AND TRAMADOL HCL [Suspect]
     Indication: PRODUCT USED FOR UNKNOWN INDICATION
     Route: 048

REACTIONS (1)
  - AGRANULOCYTOSIS [None]
